FAERS Safety Report 16899324 (Version 1)
Quarter: 2019Q4

REPORT INFORMATION
  Report Type: Spontaneous
  Country: US (occurrence: US)
  Receive Date: 20191008
  Receipt Date: 20191008
  Transmission Date: 20200122
  Serious: Yes (Other)
  Sender: FDA-Public Use
  Company Number: None

PATIENT
  Age: 68 Year
  Sex: Male

DRUGS (1)
  1. LATANOPROST. [Suspect]
     Active Substance: LATANOPROST
     Route: 047
     Dates: start: 20171103, end: 20190411

REACTIONS (3)
  - Instillation site swelling [None]
  - Product substitution issue [None]
  - Instillation site erythema [None]

NARRATIVE: CASE EVENT DATE: 20181107
